FAERS Safety Report 9285497 (Version 1)
Quarter: 2013Q2

REPORT INFORMATION
  Report Type: Spontaneous
  Country: US (occurrence: US)
  Receive Date: 20130513
  Receipt Date: 20130513
  Transmission Date: 20140414
  Serious: No
  Sender: FDA-Public Use
  Company Number: US-PFIZER INC-2013146821

PATIENT
  Age: 76 Year
  Sex: Female
  Weight: 60.32 kg

DRUGS (1)
  1. LYRICA [Suspect]
     Dosage: 50 MG, 2X/DAY
     Route: 048
     Dates: start: 20130412, end: 2013

REACTIONS (5)
  - Local swelling [Unknown]
  - Dizziness [Unknown]
  - Hyperhidrosis [Unknown]
  - Weight increased [Unknown]
  - Feeling abnormal [Unknown]
